FAERS Safety Report 4506193-X (Version None)
Quarter: 2004Q4

REPORT INFORMATION
  Report Type: 
  Country: None (occurrence: None)
  Receive Date: 20041119
  Receipt Date: 20030916
  Transmission Date: 20050328
  Serious: Yes (Hospitalization)
  Sender: FDA-Public Use
  Company Number: DE-MERCK-0309DEU00109

PATIENT
  Age: 4 Year
  Sex: Male
  Weight: 19 kg

DRUGS (5)
  1. CEFIXIME [Suspect]
     Indication: TONSILLITIS
     Route: 048
     Dates: start: 20030601, end: 20030601
  2. ALBUTEROL SULFATE [Concomitant]
     Route: 065
  3. IPRATROPIUM BROMIDE [Concomitant]
     Route: 065
  4. CETIRIZINE HYDROCHLORIDE [Concomitant]
     Route: 065
  5. SINGULAIR [Suspect]
     Indication: INFANTILE ASTHMA
     Route: 048
     Dates: start: 20030423, end: 20030513

REACTIONS (8)
  - ABDOMINAL PAIN [None]
  - CELLULITIS [None]
  - DIARRHOEA [None]
  - HAEMOGLOBIN DECREASED [None]
  - PANCREATITIS [None]
  - PYREXIA [None]
  - TONSILLITIS [None]
  - VOMITING [None]
